FAERS Safety Report 5349533-4 (Version None)
Quarter: 2007Q2

REPORT INFORMATION
  Report Type: 
  Country: None (occurrence: None)
  Receive Date: 20070607
  Receipt Date: 20070529
  Transmission Date: 20071010
  Serious: Yes (Congenital Anomaly)
  Sender: FDA-Public Use
  Company Number: EC-ROCHE-499967

PATIENT
  Sex: Female
  Weight: 2.9 kg

DRUGS (1)
  1. ROACCUTAN [Suspect]
     Indication: ACNE
     Dates: start: 20060701, end: 20061030

REACTIONS (3)
  - DYSPNOEA [None]
  - HYDROCEPHALUS [None]
  - TACHYPNOEA [None]
